FAERS Safety Report 18561219 (Version 2)
Quarter: 2020Q4

REPORT INFORMATION
  Report Type: Report from Study
  Country: US (occurrence: US)
  Receive Date: 20201130
  Receipt Date: 20201221
  Transmission Date: 20210114
  Serious: Yes (Other)
  Sender: FDA-Public Use
  Company Number: US-JNJFOC-20201143052

PATIENT
  Age: 33 Year
  Sex: Male
  Weight: 79.45 kg

DRUGS (6)
  1. SPRAVATO [Suspect]
     Active Substance: ESKETAMINE
     Dates: start: 20201119, end: 20201119
  2. ESCITALOPRAM [Concomitant]
     Active Substance: ESCITALOPRAM OXALATE
     Dates: start: 20180410
  3. SPRAVATO [Suspect]
     Active Substance: ESKETAMINE
     Dosage: 84MG, 15 TOTAL DOSES
     Dates: start: 20200501, end: 20201104
  4. LORAZEPAM. [Concomitant]
     Active Substance: LORAZEPAM
     Dates: start: 20180108
  5. TRINTELLIX [Concomitant]
     Active Substance: VORTIOXETINE HYDROBROMIDE
     Dates: start: 20191022
  6. SPRAVATO [Suspect]
     Active Substance: ESKETAMINE
     Indication: DEPRESSION
     Dosage: 56MG, 2 TOTAL DOSES
     Dates: start: 20200421, end: 20200424

REACTIONS (1)
  - Vomiting [Recovered/Resolved]

NARRATIVE: CASE EVENT DATE: 20201119
